FAERS Safety Report 4964978-X (Version None)
Quarter: 2006Q2

REPORT INFORMATION
  Report Type: 
  Country: None (occurrence: None)
  Receive Date: 20060406
  Receipt Date: 20060322
  Transmission Date: 20061013
  Serious: Yes (Hospitalization)
  Sender: FDA-Public Use
  Company Number: HQWYE480523MAR06

PATIENT
  Sex: Male
  Weight: 70 kg

DRUGS (4)
  1. ENBREL [Interacting]
     Indication: PSORIATIC ARTHROPATHY
     Dosage: 50 MG, FREQUENCY UNKNOWN
     Route: 058
     Dates: start: 20060129
  2. SALAZOPYRIN [Interacting]
  3. ISONIAZID [Interacting]
  4. METHOTREXATE [Suspect]

REACTIONS (2)
  - DRUG INTERACTION [None]
  - HEPATIC ENZYME INCREASED [None]
